FAERS Safety Report 6710418-X (Version None)
Quarter: 2010Q2

REPORT INFORMATION
  Report Type: 
  Country: None (occurrence: None)
  Receive Date: 20100504
  Receipt Date: 20100426
  Transmission Date: 20101027
  Serious: Yes (Other)
  Sender: FDA-Public Use
  Company Number: CA-PFIZER INC-2009155062

PATIENT
  Age: 56 Year
  Sex: Female

DRUGS (6)
  1. LIPITOR [Suspect]
     Indication: BLOOD CHOLESTEROL INCREASED
     Dosage: 10 MG, 1X/DAY
     Route: 048
     Dates: start: 20050101, end: 20050101
  2. LIPITOR [Suspect]
     Indication: PROPHYLAXIS
  3. METFORMIN HYDROCHLORIDE [Suspect]
     Indication: GLUCOSE TOLERANCE IMPAIRED
  4. ASPIRIN [Concomitant]
     Dosage: UNK
  5. ALTACE [Concomitant]
     Dosage: UNK
  6. TENORMIN [Concomitant]
     Dosage: UNK

REACTIONS (6)
  - ABNORMAL BEHAVIOUR [None]
  - BLOOD CHOLESTEROL INCREASED [None]
  - EMOTIONAL DISORDER [None]
  - INSOMNIA [None]
  - PHYSICAL ASSAULT [None]
  - POLYURIA [None]
